FAERS Safety Report 20512086 (Version 1)
Quarter: 2022Q1

REPORT INFORMATION
  Report Type: Spontaneous
  Country: US (occurrence: None)
  Receive Date: 20220223
  Receipt Date: 20220223
  Transmission Date: 20220423
  Serious: Yes (Hospitalization)
  Sender: FDA-Public Use
  Company Number: None

PATIENT
  Age: 84 Year
  Sex: Female
  Weight: 67.1 kg

DRUGS (4)
  1. NINLARO [Suspect]
     Active Substance: IXAZOMIB CITRATE
     Indication: Plasma cell myeloma
     Dosage: OTHER FREQUENCY : DAYS 1,8,15;?
     Route: 048
     Dates: start: 20210817, end: 20210902
  2. ABATACEPT [Suspect]
     Active Substance: ABATACEPT
     Indication: Plasma cell myeloma
     Dosage: OTHER FREQUENCY : DAY 1;?
     Route: 041
     Dates: start: 20210817, end: 20210817
  3. ABATACEPT [Concomitant]
  4. DEXAMETHASONE [Concomitant]

REACTIONS (2)
  - Diarrhoea [None]
  - Toxicity to various agents [None]

NARRATIVE: CASE EVENT DATE: 20210902
